FAERS Safety Report 5585385-5 (Version None)
Quarter: 2008Q1

REPORT INFORMATION
  Report Type: 
  Country: None (occurrence: None)
  Receive Date: 20080109
  Receipt Date: 20071228
  Transmission Date: 20080703
  Serious: Yes (Other)
  Sender: FDA-Public Use
  Company Number: US-GILEAD-2008-0014835

PATIENT
  Age: 27 Year
  Sex: Female

DRUGS (5)
  1. ATRIPLA [Suspect]
     Indication: HIV INFECTION
     Dosage: 600/200 MILLIGRAM
     Route: 048
     Dates: start: 20061219, end: 20070529
  2. TRUVADA [Suspect]
     Indication: HIV INFECTION
     Dosage: 200/300 MILLIGRAM
     Route: 048
     Dates: start: 20070529, end: 20071022
  3. NEVIRAPINE [Suspect]
     Indication: HIV INFECTION
     Route: 048
     Dates: start: 20070529, end: 20071022
  4. KALETRA [Suspect]
     Indication: HIV INFECTION
     Dosage: 800/200 MILLIGRAM
     Route: 048
     Dates: start: 20071023
  5. TRIZIVIR [Suspect]
     Indication: HIV INFECTION
     Dosage: 300/150/300 MILLIGRAM
     Route: 048
     Dates: start: 20071023

REACTIONS (2)
  - PREGNANCY [None]
  - PREMATURE LABOUR [None]
